FAERS Safety Report 5034819-3 (Version None)
Quarter: 2006Q2

REPORT INFORMATION
  Report Type: 
  Country: None (occurrence: None)
  Receive Date: 20060509
  Receipt Date: 20060224
  Transmission Date: 20061013
  Serious: Yes (Disabling)
  Sender: FDA-Public Use
  Company Number: WAES 0602USA05568

PATIENT
  Age: 80 Year
  Sex: Female
  Weight: 66.2252 kg

DRUGS (4)
  1. FOSAMAX PLUS D [Suspect]
     Indication: OSTEOPOROSIS
     Dosage: 70MG/2800 IU/WKY/PO
     Route: 048
     Dates: start: 20060124, end: 20060214
  2. PRAVACHOL [Concomitant]
  3. ZETIA [Concomitant]
  4. CALCIUM + VITAMIN [Concomitant]

REACTIONS (1)
  - ARTHRALGIA [None]
